FAERS Safety Report 11225568 (Version 1)
Quarter: 2015Q2

REPORT INFORMATION
  Report Type: Spontaneous
  Country: US (occurrence: US)
  Receive Date: 20150629
  Receipt Date: 20150629
  Transmission Date: 20150821
  Serious: Yes (Hospitalization, Other)
  Sender: FDA-Public Use
  Company Number: US-GLAXOSMITHKLINE-US2015092214

PATIENT
  Age: 86 Year
  Sex: Female

DRUGS (13)
  1. AMIODARONE [Suspect]
     Active Substance: AMIODARONE
     Indication: HEART RATE INCREASED
     Dosage: 400 MG, BID
     Route: 048
     Dates: start: 201502
  2. LANOXIN [Suspect]
     Active Substance: DIGOXIN
     Indication: PRODUCT USED FOR UNKNOWN INDICATION
     Dosage: 125 MG, QD
     Route: 048
     Dates: end: 201506
  3. AMIODARONE [Suspect]
     Active Substance: AMIODARONE
     Dosage: 200 MG, QD
     Route: 048
  4. ALPRAZOLAM. [Concomitant]
     Active Substance: ALPRAZOLAM
  5. AMIODARONE [Concomitant]
     Active Substance: AMIODARONE
  6. CARVEDILOL. [Suspect]
     Active Substance: CARVEDILOL
     Indication: PRODUCT USED FOR UNKNOWN INDICATION
     Dosage: UNK UNK, BID
     Route: 048
  7. FUROSEMIDE. [Concomitant]
     Active Substance: FUROSEMIDE
  8. COREG [Suspect]
     Active Substance: CARVEDILOL
     Indication: CARDIAC FAILURE
     Dosage: 12.5 MG, BID
     Route: 048
  9. CRESTOR [Concomitant]
     Active Substance: ROSUVASTATIN CALCIUM
  10. LANOXIN [Concomitant]
     Active Substance: DIGOXIN
  11. ALLOPURINOL. [Concomitant]
     Active Substance: ALLOPURINOL
  12. GLIPIZIDE. [Concomitant]
     Active Substance: GLIPIZIDE
  13. LANSOPRAZOLE. [Concomitant]
     Active Substance: LANSOPRAZOLE

REACTIONS (7)
  - Heart rate decreased [Not Recovered/Not Resolved]
  - Balance disorder [Recovering/Resolving]
  - Immobile [Not Recovered/Not Resolved]
  - Nausea [Recovered/Resolved]
  - Heart rate increased [Recovered/Resolved]
  - Anxiety [Not Recovered/Not Resolved]
  - Asthenia [Recovered/Resolved]

NARRATIVE: CASE EVENT DATE: 201502
